FAERS Safety Report 9332025 (Version 1)
Quarter: 2013Q2

REPORT INFORMATION
  Report Type: Spontaneous
  Country: JP (occurrence: JP)
  Receive Date: 20130605
  Receipt Date: 20130605
  Transmission Date: 20140414
  Serious: No
  Sender: FDA-Public Use
  Company Number: JP-B.I. PHARMACEUTICALS,INC./RIDGEFIELD-2013-BI-15863NB

PATIENT
  Age: 80 Year
  Sex: Female

DRUGS (9)
  1. TRAZENTA [Suspect]
     Dosage: 5 MG
     Route: 048
     Dates: start: 20130511, end: 20130513
  2. BASEN [Concomitant]
     Route: 065
  3. ACTOS [Concomitant]
     Route: 065
  4. DIOVAN [Concomitant]
     Route: 065
  5. DONEPEZIL HYDROCHLORIDE [Concomitant]
     Route: 065
  6. NORVASC [Concomitant]
     Route: 065
  7. FAMOTIDINE [Concomitant]
     Route: 065
  8. KALIMATE [Concomitant]
     Route: 065
  9. ALOSENN [Concomitant]
     Route: 065

REACTIONS (1)
  - Drug eruption [Recovered/Resolved]
